FAERS Safety Report 19966657 (Version 2)
Quarter: 2022Q2

REPORT INFORMATION
  Report Type: Spontaneous
  Country: US (occurrence: US)
  Receive Date: 20211019
  Receipt Date: 20220411
  Transmission Date: 20220721
  Serious: Yes (Hospitalization)
  Sender: FDA-Public Use
  Company Number: US-GLAXOSMITHKLINE-US2021AMR214343

PATIENT
  Sex: Female
  Weight: 104.8 kg

DRUGS (1)
  1. ZEJULA [Suspect]
     Active Substance: NIRAPARIB
     Indication: Product used for unknown indication
     Dosage: 200 MG, QD

REACTIONS (5)
  - Platelet count decreased [Recovering/Resolving]
  - Red blood cell count decreased [Recovering/Resolving]
  - White blood cell count decreased [Recovering/Resolving]
  - Malaise [Unknown]
  - Catheter management [Unknown]
